FAERS Safety Report 16324425 (Version 3)
Quarter: 2019Q2

REPORT INFORMATION
  Report Type: Spontaneous
  Country: JP (occurrence: JP)
  Receive Date: 20190517
  Receipt Date: 20190619
  Transmission Date: 20190711
  Serious: Yes (Hospitalization, Other)
  Sender: FDA-Public Use
  Company Number: JP-ROCHE-2316417

PATIENT
  Age: 68 Year
  Sex: Female
  Weight: 52 kg

DRUGS (7)
  1. AVASTIN [Suspect]
     Active Substance: BEVACIZUMAB
     Indication: OFF LABEL USE
  2. BROTIZOLAM [Concomitant]
     Active Substance: BROTIZOLAM
     Indication: OFF LABEL USE
     Dosage: DOSAGE IS UNCERTAIN.
     Route: 048
  3. AZILSARTAN [Concomitant]
     Active Substance: AZILSARTAN KAMEDOXOMIL
     Indication: OFF LABEL USE
     Dosage: DOSAGE IS UNCERTAIN.
     Route: 048
  4. PACLITAXEL. [Concomitant]
     Active Substance: PACLITAXEL
     Indication: THYMOMA
     Dosage: DOSAGE IS UNCERTAIN.
     Route: 041
  5. AVASTIN [Suspect]
     Active Substance: BEVACIZUMAB
     Indication: THYMOMA
     Route: 041
  6. PACLITAXEL. [Concomitant]
     Active Substance: PACLITAXEL
     Indication: OFF LABEL USE
  7. MAGNESIUM OXIDE. [Concomitant]
     Active Substance: MAGNESIUM OXIDE
     Indication: OFF LABEL USE
     Dosage: DOSAGE IS UNCERTAIN.
     Route: 048

REACTIONS (5)
  - Metastases to pleura [Recovered/Resolved]
  - Disease progression [Recovered/Resolved]
  - Product use in unapproved indication [Unknown]
  - Neutrophil count decreased [Unknown]
  - Off label use [Unknown]
